FAERS Safety Report 17744126 (Version 1)
Quarter: 2020Q2

REPORT INFORMATION
  Report Type: Spontaneous
  Country: CA (occurrence: CA)
  Receive Date: 20200505
  Receipt Date: 20200505
  Transmission Date: 20200714
  Serious: Yes (Other)
  Sender: FDA-Public Use
  Company Number: CA-ROCHE-2590175

PATIENT
  Age: 62 Year
  Sex: Male

DRUGS (7)
  1. ACTEMRA [Suspect]
     Active Substance: TOCILIZUMAB
     Indication: RHEUMATOID ARTHRITIS
     Route: 065
  2. ENBREL [Suspect]
     Active Substance: ETANERCEPT
     Indication: PRODUCT USED FOR UNKNOWN INDICATION
     Route: 065
  3. XELJANZ [Concomitant]
     Active Substance: TOFACITINIB CITRATE
     Indication: PRODUCT USED FOR UNKNOWN INDICATION
     Route: 065
  4. HYDROXYCHLOROQUINE [Suspect]
     Active Substance: HYDROXYCHLOROQUINE
     Indication: PRODUCT USED FOR UNKNOWN INDICATION
     Route: 048
  5. ORENCIA [Suspect]
     Active Substance: ABATACEPT
     Indication: RHEUMATOID ARTHRITIS
     Route: 065
  6. HYDROXYCHLOROQUINE [Suspect]
     Active Substance: HYDROXYCHLOROQUINE
     Indication: PRODUCT USED FOR UNKNOWN INDICATION
     Route: 065
  7. METHOTREXATE. [Suspect]
     Active Substance: METHOTREXATE
     Indication: RHEUMATOID ARTHRITIS
     Route: 065

REACTIONS (22)
  - Bone erosion [Unknown]
  - Burning sensation [Unknown]
  - Treatment failure [Unknown]
  - Joint swelling [Unknown]
  - Leukopenia [Unknown]
  - Memory impairment [Unknown]
  - Mobility decreased [Unknown]
  - Peripheral swelling [Unknown]
  - Drug ineffective [Unknown]
  - Intestinal polyp [Unknown]
  - Nephrolithiasis [Unknown]
  - Therapeutic product effect incomplete [Unknown]
  - Drug intolerance [Unknown]
  - Product dose omission [Unknown]
  - Synovitis [Unknown]
  - Contraindicated product administered [Unknown]
  - Pain in extremity [Unknown]
  - Colitis [Unknown]
  - White blood cell count decreased [Unknown]
  - C-reactive protein abnormal [Unknown]
  - Pain [Unknown]
  - Therapeutic product effect decreased [Unknown]
